FAERS Safety Report 13466359 (Version 1)
Quarter: 2017Q2

REPORT INFORMATION
  Report Type: Spontaneous
  Country: US (occurrence: US)
  Receive Date: 20170420
  Receipt Date: 20170420
  Transmission Date: 20170830
  Serious: No
  Sender: FDA-Public Use
  Company Number: None

PATIENT
  Age: 50 Year
  Sex: Female

DRUGS (1)
  1. ENBREL [Suspect]
     Active Substance: ETANERCEPT
     Indication: AUTOIMMUNE DISORDER
     Route: 058
     Dates: start: 20161011

REACTIONS (2)
  - Inappropriate schedule of drug administration [None]
  - Headache [None]

NARRATIVE: CASE EVENT DATE: 20170310
